FAERS Safety Report 24735103 (Version 5)
Quarter: 2025Q1

REPORT INFORMATION
  Report Type: Spontaneous
  Country: JP (occurrence: JP)
  Receive Date: 20241215
  Receipt Date: 20250103
  Transmission Date: 20250408
  Serious: Yes (Hospitalization, Other)
  Sender: BAUSCH AND LOMB
  Company Number: JP-NORGINE LIMITED-NOR202403457

PATIENT
  Age: 56 Year
  Sex: Female

DRUGS (6)
  1. MOVIPREP [Suspect]
     Active Substance: ASCORBIC ACID\POLYETHYLENE GLYCOL 3350\POTASSIUM CHLORIDE\SODIUM ASCORBATE\SODIUM CHLORIDE\SODIUM SU
     Indication: Colonoscopy
     Dosage: 1 L, QD (WITH 0.5L OF WATER)
     Route: 048
     Dates: start: 20241203, end: 20241203
  2. MOVIPREP [Suspect]
     Active Substance: ASCORBIC ACID\POLYETHYLENE GLYCOL 3350\POTASSIUM CHLORIDE\SODIUM ASCORBATE\SODIUM CHLORIDE\SODIUM SU
     Route: 048
  3. MOVICOL [Suspect]
     Active Substance: POLYETHYLENE GLYCOL 3350\POTASSIUM CHLORIDE\SODIUM BICARBONATE\SODIUM CHLORIDE
     Indication: Constipation
     Route: 048
     Dates: start: 20241128, end: 20241202
  4. MOSAPRIDE CITRATE [Suspect]
     Active Substance: MOSAPRIDE CITRATE
     Indication: Colonoscopy
     Route: 048
     Dates: start: 20241203, end: 20241203
  5. DIMETHICONE [Suspect]
     Active Substance: DIMETHICONE
     Indication: Colonoscopy
     Dosage: 80MG QD
     Route: 048
     Dates: start: 20241203, end: 20241203
  6. SODIUM PICOSULFATE [Concomitant]
     Active Substance: SODIUM PICOSULFATE
     Indication: Product used for unknown indication
     Route: 065
     Dates: start: 20241202, end: 20241202

REACTIONS (1)
  - Brain stem infarction [Recovering/Resolving]

NARRATIVE: CASE EVENT DATE: 20241203
